FAERS Safety Report 21204204 (Version 3)
Quarter: 2025Q2

REPORT INFORMATION
  Report Type: Spontaneous
  Country: US (occurrence: US)
  Receive Date: 20220812
  Receipt Date: 20250528
  Transmission Date: 20250717
  Serious: Yes (Hospitalization, Other)
  Sender: AUROBINDO
  Company Number: US-MLMSERVICE-20220726-3691321-1

PATIENT
  Age: 51 Year
  Sex: Male

DRUGS (2)
  1. PREDNISONE [Suspect]
     Active Substance: PREDNISONE
     Indication: Asthma
     Route: 048
  2. PREDNISONE [Suspect]
     Active Substance: PREDNISONE
     Dosage: 12.5 MILLIGRAM, ONCE A DAY
     Route: 048

REACTIONS (3)
  - Asthma [Recovered/Resolved]
  - Secondary immunodeficiency [Recovered/Resolved]
  - Pneumonia [Recovered/Resolved]
